FAERS Safety Report 15676346 (Version 1)
Quarter: 2018Q4

REPORT INFORMATION
  Report Type: Spontaneous
  Country: FR (occurrence: FR)
  Receive Date: 20181130
  Receipt Date: 20181130
  Transmission Date: 20190205
  Serious: Yes (Death)
  Sender: FDA-Public Use
  Company Number: FR-OTSUKA-2018_037616

PATIENT
  Age: 64 Year
  Sex: Male
  Weight: 82 kg

DRUGS (8)
  1. ABILIFY [Suspect]
     Active Substance: ARIPIPRAZOLE
     Indication: PSYCHOTIC DISORDER
     Dosage: 10 MG, QD
     Route: 048
     Dates: end: 20181029
  2. LOXAPAC [Concomitant]
     Active Substance: LOXAPINE
     Indication: PRODUCT USED FOR UNKNOWN INDICATION
     Dosage: UNK
     Route: 065
  3. DEPAKOTE [Concomitant]
     Active Substance: DIVALPROEX SODIUM
     Indication: PRODUCT USED FOR UNKNOWN INDICATION
     Dosage: UNK
     Route: 065
  4. TERCIAN [Suspect]
     Active Substance: CYAMEMAZINE
     Indication: PSYCHOTIC DISORDER
     Dosage: UNK
     Route: 048
     Dates: end: 20181029
  5. NOCTAMIDE [Suspect]
     Active Substance: LORMETAZEPAM
     Indication: PSYCHOTIC DISORDER
     Dosage: UNK
     Route: 048
     Dates: end: 20181029
  6. RISPERDAL [Concomitant]
     Active Substance: RISPERIDONE
     Indication: PRODUCT USED FOR UNKNOWN INDICATION
     Dosage: UNK
     Route: 065
  7. VALIUM [Concomitant]
     Active Substance: DIAZEPAM
     Indication: PRODUCT USED FOR UNKNOWN INDICATION
     Dosage: UNK
     Route: 065
  8. TEMESTA (LORAZEPAM) [Suspect]
     Active Substance: LORAZEPAM
     Indication: PSYCHOTIC DISORDER
     Dosage: UNK
     Route: 048
     Dates: end: 20181029

REACTIONS (3)
  - Withdrawal syndrome [Fatal]
  - Product use in unapproved indication [Unknown]
  - Completed suicide [Fatal]

NARRATIVE: CASE EVENT DATE: 20181112
